FAERS Safety Report 10716537 (Version 3)
Quarter: 2015Q3

REPORT INFORMATION
  Report Type: Spontaneous
  Country: US (occurrence: US)
  Receive Date: 20150116
  Receipt Date: 20150721
  Transmission Date: 20151125
  Serious: Yes (Hospitalization, Other)
  Sender: FDA-Public Use
  Company Number: US-BAYER-2015-004785

PATIENT
  Age: 22 Year
  Sex: Female
  Weight: 90.7 kg

DRUGS (2)
  1. DOXYCYCLIN [DOXYCYCLINE HYDROCHLORIDE] [Concomitant]
     Dosage: 100 MG, UNK
     Route: 048
  2. MIRENA [Suspect]
     Active Substance: LEVONORGESTREL
     Indication: CONTRACEPTION
     Dosage: 20 MCG/24HR, CONT
     Route: 015
     Dates: start: 20071112, end: 20130208

REACTIONS (9)
  - Pregnancy with contraceptive device [None]
  - Medical device pain [None]
  - Embedded device [None]
  - Device use error [None]
  - Procedural pain [Not Recovered/Not Resolved]
  - Device issue [None]
  - Injury [None]
  - Abortion spontaneous [None]
  - Drug ineffective [None]

NARRATIVE: CASE EVENT DATE: 200805
